FAERS Safety Report 6170052-X (Version None)
Quarter: 2009Q2

REPORT INFORMATION
  Report Type: 
  Country: None (occurrence: None)
  Receive Date: 20090428
  Receipt Date: 20090413
  Transmission Date: 20091009
  Serious: Yes (Death, Other)
  Sender: FDA-Public Use
  Company Number: FR-GENENTECH-281710

PATIENT

DRUGS (5)
  1. RITUXAN [Suspect]
     Indication: ANAEMIA HAEMOLYTIC AUTOIMMUNE
     Dosage: 375 MG/M2, 1/WEEK
     Route: 042
  2. METHYLPREDNISOLONE 4MG TAB [Suspect]
     Indication: ANAEMIA HAEMOLYTIC AUTOIMMUNE
     Dosage: 60 MG, UNK
     Route: 042
  3. METHYLPREDNISOLONE 4MG TAB [Suspect]
     Indication: PREMEDICATION
  4. DEXCHLORPHENIRAMINE [Suspect]
     Indication: ANAEMIA HAEMOLYTIC AUTOIMMUNE
     Dosage: 5 MG, UNK
     Route: 042
  5. DEXCHLORPHENIRAMINE [Suspect]
     Indication: PREMEDICATION

REACTIONS (5)
  - ARTHRALGIA [None]
  - INFECTION [None]
  - MYOCARDIAL INFARCTION [None]
  - NEPHRITIS [None]
  - URTICARIA [None]
